FAERS Safety Report 14394950 (Version 1)
Quarter: 2018Q1

REPORT INFORMATION
  Report Type: Spontaneous
  Country: US (occurrence: US)
  Receive Date: 20180116
  Receipt Date: 20180116
  Transmission Date: 20180509
  Serious: No
  Sender: FDA-Public Use
  Company Number: US-PFIZER INC-2018020127

PATIENT
  Age: 52 Year
  Sex: Male
  Weight: 142.88 kg

DRUGS (1)
  1. VIAGRA [Suspect]
     Active Substance: SILDENAFIL CITRATE
     Dosage: 100 MG TABLET BY MOUTH; TAKES AS PRESRIPTIONS SAYS; TAKESAS NEEDED
     Route: 048
     Dates: start: 2017

REACTIONS (2)
  - Nasopharyngitis [Recovering/Resolving]
  - Dysphonia [Recovering/Resolving]

NARRATIVE: CASE EVENT DATE: 20180114
